FAERS Safety Report 4595015-7 (Version None)
Quarter: 2005Q1

REPORT INFORMATION
  Report Type: 
  Country: None (occurrence: None)
  Receive Date: 20050223
  Receipt Date: 20050210
  Transmission Date: 20050727
  Serious: Yes (Life-Threatening, Hospitalization)
  Sender: FDA-Public Use
  Company Number: 2005028150

PATIENT
  Age: 23 Year
  Sex: Female

DRUGS (2)
  1. ZOLOFT [Suspect]
     Indication: ILL-DEFINED DISORDER
     Dosage: 1400 MG (50 MG), ORAL
     Route: 048
  2. BENZODIAZEPINE DERIVATIVES (BENZODIAZEPINE DERIVATIVES) [Suspect]
     Indication: ILL-DEFINED DISORDER

REACTIONS (2)
  - INTENTIONAL MISUSE [None]
  - SUICIDE ATTEMPT [None]
